FAERS Safety Report 17009218 (Version 3)
Quarter: 2020Q3

REPORT INFORMATION
  Report Type: Spontaneous
  Country: US (occurrence: US)
  Receive Date: 20191108
  Receipt Date: 20200820
  Transmission Date: 20201102
  Serious: Yes (Hospitalization, Other)
  Sender: FDA-Public Use
  Company Number: US-PFIZER INC-2019478282

PATIENT
  Age: 21 Year
  Sex: Female

DRUGS (3)
  1. ACETYLCYSTEINE. [Suspect]
     Active Substance: ACETYLCYSTEINE
     Dosage: UNK 160 ML/H OF A 3% ACETYLCYSTEINE WAS STARTED (APPROX 100/MG/KG/H BASED ON A 48?KG BODY WEIGHT)
  2. ACETYLCYSTEINE. [Suspect]
     Active Substance: ACETYLCYSTEINE
     Indication: DETOXIFICATION
     Dosage: 10.8 G, UNK (ACETYLCYSTEINE SOLUTION (150 MG/KG BASED ON A BODY WEIGHT OF 48 KG) (60?MIN INFUSION)
  3. ACETYLCYSTEINE. [Suspect]
     Active Substance: ACETYLCYSTEINE
     Indication: TOXICITY TO VARIOUS AGENTS
     Dosage: UNK 80 ML/H OF A 3% ACETYLCYSTEINE SOLUTION FOR 4 H (APPROX 50 MG/KG/H BASED ON A 48?KG BODY WEIGHT)

REACTIONS (8)
  - Seizure [Unknown]
  - Incorrect dose administered [Unknown]
  - Brain oedema [Unknown]
  - Apallic syndrome [Unknown]
  - Brain herniation [Unknown]
  - Overdose [Unknown]
  - Hypokalaemia [Unknown]
  - Pancreatitis [Unknown]
